FAERS Safety Report 4436070-4 (Version None)
Quarter: 2004Q3

REPORT INFORMATION
  Report Type: 
  Country: None (occurrence: None)
  Receive Date: 20040726
  Receipt Date: 20040428
  Transmission Date: 20050211
  Serious: No
  Sender: FDA-Public Use
  Company Number: USA040466203

PATIENT
  Age: 78 Year
  Sex: Female

DRUGS (10)
  1. FORTEO [Suspect]
     Indication: OSTEOPOROSIS
     Dates: start: 20040401
  2. SYNTHROID [Concomitant]
  3. CLARINEX [Concomitant]
  4. VIOXX [Concomitant]
  5. MAGNESIUM OXIDE [Concomitant]
  6. Q-BID-LA (GUAIFENESIN) [Concomitant]
  7. LOSARTAN POTASSIUM W/ HYDROCHLOROTHIAZIDE [Concomitant]
  8. ZOLOFT [Concomitant]
  9. LIPITOR [Concomitant]
  10. PREMARIN [Concomitant]

REACTIONS (5)
  - DECREASED APPETITE [None]
  - DIZZINESS [None]
  - FATIGUE [None]
  - NAUSEA [None]
  - STOMACH DISCOMFORT [None]
